FAERS Safety Report 18579390 (Version 2)
Quarter: 2020Q4

REPORT INFORMATION
  Report Type: Report from Study
  Country: US (occurrence: US)
  Receive Date: 20201204
  Receipt Date: 20201214
  Transmission Date: 20210114
  Serious: Yes (Other)
  Sender: FDA-Public Use
  Company Number: US-IPSEN BIOPHARMACEUTICALS, INC.-2019-01581

PATIENT
  Age: 4 Year
  Sex: Female
  Weight: 16.8 kg

DRUGS (35)
  1. BETHANECHOL [Concomitant]
     Active Substance: BETHANECHOL
     Indication: URINARY TRACT INFECTION
     Dates: start: 20170809, end: 20171108
  2. FLONASE [Concomitant]
     Active Substance: FLUTICASONE PROPIONATE
     Indication: CHRONIC RESPIRATORY DISEASE
     Dosage: 1 SPRAY; ONGOING
     Route: 045
     Dates: start: 20170615
  3. DIAZEPAM. [Concomitant]
     Active Substance: DIAZEPAM
     Indication: SEIZURE
     Dosage: ONGOING
     Route: 054
     Dates: start: 20160922
  4. NYSTATIN. [Concomitant]
     Active Substance: NYSTATIN
     Indication: RASH
     Dosage: DOSE: 1
     Route: 061
     Dates: start: 20170329, end: 20171019
  5. CLOBAZAM. [Concomitant]
     Active Substance: CLOBAZAM
     Dosage: ONGOING
     Dates: start: 20171205
  6. MIRALAX [Concomitant]
     Active Substance: POLYETHYLENE GLYCOL 3350
     Indication: CONSTIPATION
     Dosage: 2 TEASPOONS AS NEEDED
     Dates: start: 20170615, end: 20171019
  7. ACETAMINOPHEN. [Concomitant]
     Active Substance: ACETAMINOPHEN
     Dosage: ONGOING
     Dates: start: 20171019
  8. GABAPENTIN. [Concomitant]
     Active Substance: GABAPENTIN
     Dates: start: 20181027, end: 20190108
  9. FERROUS SULFATE. [Concomitant]
     Active Substance: FERROUS SULFATE
     Indication: SERUM FERRITIN DECREASED
     Dates: start: 20170623, end: 20171019
  10. VALPROIC ACID. [Concomitant]
     Active Substance: VALPROIC ACID
     Indication: SEIZURE
     Dates: start: 20181027, end: 20181030
  11. ATROVENT [Concomitant]
     Active Substance: IPRATROPIUM BROMIDE
     Indication: CHRONIC RESPIRATORY DISEASE
     Route: 055
     Dates: start: 20170420, end: 20200410
  12. ALBUTEROL. [Concomitant]
     Active Substance: ALBUTEROL
     Indication: CHRONIC RESPIRATORY DISEASE
     Dosage: ONGOING
     Route: 055
     Dates: start: 20170615
  13. SODIUM CHLORIDE. [Concomitant]
     Active Substance: SODIUM CHLORIDE
     Indication: CHRONIC RESPIRATORY DISEASE
     Dosage: ONGOING
     Route: 055
     Dates: start: 20170426
  14. COLACE [Concomitant]
     Active Substance: DOCUSATE SODIUM
     Indication: CONSTIPATION
     Dosage: ONGOING
     Dates: start: 20170817
  15. BETHANECHOL [Concomitant]
     Active Substance: BETHANECHOL
     Dosage: ONGOING
     Dates: start: 20171108
  16. ACETAMINOPHEN. [Concomitant]
     Active Substance: ACETAMINOPHEN
     Indication: PAIN
     Dates: start: 20170807, end: 20171019
  17. FLOVENT HFA [Concomitant]
     Active Substance: FLUTICASONE PROPIONATE
     Indication: CHRONIC RESPIRATORY DISEASE
     Dosage: 2 PUFFS; ONGOING
     Route: 055
     Dates: start: 20160901
  18. CHOLECALCIFEROL [Concomitant]
     Active Substance: CHOLECALCIFEROL
     Indication: VITAMIN D DEFICIENCY
     Dosage: ONGOING
     Dates: start: 20170622
  19. ESOMEPRAZOLE. [Concomitant]
     Active Substance: ESOMEPRAZOLE MAGNESIUM
     Indication: GASTROOESOPHAGEAL REFLUX DISEASE
     Dates: start: 20160401, end: 20190820
  20. PHENOBARBITAL. [Concomitant]
     Active Substance: PHENOBARBITAL
     Indication: SEIZURE
     Dates: start: 20160205, end: 20190322
  21. IBUPROFEN. [Concomitant]
     Active Substance: IBUPROFEN
     Indication: PAIN
     Dosage: ONGOING
     Dates: start: 20170615
  22. DYSPORT [Suspect]
     Active Substance: ABOBOTULINUMTOXINA
     Indication: MUSCLE SPASTICITY
  23. DYSPORT [Suspect]
     Active Substance: ABOBOTULINUMTOXINA
     Indication: MUSCLE SPASTICITY
     Dosage: DOSE NOT REPORTED
     Route: 030
     Dates: start: 20171010, end: 20171010
  24. DYSPORT [Suspect]
     Active Substance: ABOBOTULINUMTOXINA
     Indication: OFF LABEL USE
  25. VALPROIC ACID. [Concomitant]
     Active Substance: VALPROIC ACID
     Dosage: ONCE
     Dates: start: 20181123, end: 20181123
  26. MELATONIN [Concomitant]
     Active Substance: MELATONIN
     Indication: POOR QUALITY SLEEP
     Dates: start: 20170127
  27. CUVPOSA [Concomitant]
     Active Substance: GLYCOPYRROLATE
     Indication: SALIVARY HYPERSECRETION
     Dates: start: 20170615, end: 20171019
  28. GABAPENTIN. [Concomitant]
     Active Substance: GABAPENTIN
     Dates: start: 20190108, end: 20200410
  29. PETROLIUM ZINC OXIDE [Concomitant]
     Indication: RASH
     Route: 061
     Dates: start: 20170615
  30. CLOBAZAM. [Concomitant]
     Active Substance: CLOBAZAM
     Indication: SEIZURE
     Dates: start: 20160922, end: 20171205
  31. CLOBAZAM. [Concomitant]
     Active Substance: CLOBAZAM
     Dosage: ONGOING
     Dates: start: 20171205
  32. CUVPOSA [Concomitant]
     Active Substance: GLYCOPYRROLATE
     Dosage: ONGOING
     Dates: start: 20171019
  33. MIRALAX [Concomitant]
     Active Substance: POLYETHYLENE GLYCOL 3350
     Dosage: 2 TEASPOONS
     Dates: start: 20171019
  34. GABAPENTIN. [Concomitant]
     Active Substance: GABAPENTIN
     Indication: MUSCLE SPASTICITY
     Dates: start: 20170613, end: 20181027
  35. KEPPRA [Concomitant]
     Active Substance: LEVETIRACETAM
     Indication: SEIZURE
     Dates: start: 20160922, end: 20200527

REACTIONS (5)
  - Viral infection [Recovered/Resolved]
  - Off label use [Unknown]
  - Acute respiratory failure [Recovered/Resolved]
  - Pneumonia [Recovered/Resolved]
  - Status epilepticus [Recovered/Resolved]

NARRATIVE: CASE EVENT DATE: 20171010
